FAERS Safety Report 11506988 (Version 2)
Quarter: 2015Q3

REPORT INFORMATION
  Report Type: Report from Study
  Country: BR (occurrence: BR)
  Receive Date: 20150915
  Receipt Date: 20150928
  Transmission Date: 20151125
  Serious: Yes (Other)
  Sender: FDA-Public Use
  Company Number: BR-BIOGENIDEC-2015BI122051

PATIENT
  Age: 14 Year
  Sex: Female

DRUGS (6)
  1. MACRODANTINA (NITROFURANTOIN) [Concomitant]
  2. AVONEX [Suspect]
     Active Substance: INTERFERON BETA-1A
     Indication: RELAPSING-REMITTING MULTIPLE SCLEROSIS
     Route: 030
     Dates: start: 20140404, end: 20150918
  3. CLARINOL (CLA) [Concomitant]
  4. AVONEX [Suspect]
     Active Substance: INTERFERON BETA-1A
     Indication: RELAPSING-REMITTING MULTIPLE SCLEROSIS
     Route: 030
     Dates: start: 2003
  5. CALCIUM [Concomitant]
     Active Substance: CALCIUM
  6. ELANI [Concomitant]

REACTIONS (19)
  - Glucose tolerance impaired [Recovered/Resolved]
  - Urinary tract infection [Recovered/Resolved]
  - Tachycardia [Recovered/Resolved]
  - Multiple sclerosis [Not Recovered/Not Resolved]
  - Foot fracture [Recovered/Resolved]
  - Fear of injection [Not Recovered/Not Resolved]
  - Dry mouth [Unknown]
  - Multiple sclerosis relapse [Not Recovered/Not Resolved]
  - Tuberculosis [Recovered/Resolved]
  - Osteoporosis [Not Recovered/Not Resolved]
  - Hypoaesthesia [Unknown]
  - Injection site haematoma [Not Recovered/Not Resolved]
  - Ataxia [Not Recovered/Not Resolved]
  - Injection site haemorrhage [Recovered/Resolved]
  - Drug administered to patient of inappropriate age [Unknown]
  - Incorrect route of drug administration [Recovered/Resolved]
  - Lactose intolerance [Not Recovered/Not Resolved]
  - Chills [Recovered/Resolved]
  - Fatigue [Not Recovered/Not Resolved]

NARRATIVE: CASE EVENT DATE: 2003
